FAERS Safety Report 5538250-3 (Version None)
Quarter: 2007Q4

REPORT INFORMATION
  Report Type: 
  Country: None (occurrence: None)
  Receive Date: 20071123
  Receipt Date: 20061208
  Transmission Date: 20080405
  Serious: Yes (Hospitalization)
  Sender: FDA-Public Use
  Company Number: US-JNJFOC-20060803445

PATIENT
  Sex: Male

DRUGS (1)
  1. LEVAQUIN [Suspect]
     Indication: SINUSITIS
     Dates: start: 20060729, end: 20060801

REACTIONS (4)
  - CHEST PAIN [None]
  - DEHYDRATION [None]
  - GASTRITIS [None]
  - HEADACHE [None]
